FAERS Safety Report 4461549-9 (Version None)
Quarter: 2004Q3

REPORT INFORMATION
  Report Type: 
  Country: None (occurrence: None)
  Receive Date: 20040913
  Receipt Date: 20040119
  Transmission Date: 20050211
  Serious: Yes (Hospitalization, Other)
  Sender: FDA-Public Use
  Company Number: HQWYE474319JAN04

PATIENT
  Age: 39 Year
  Sex: Male

DRUGS (3)
  1. ADVIL [Suspect]
     Dosage: ORAL
     Route: 048
  2. COZAAR [Suspect]
     Dosage: ORAL
     Route: 048
  3. THALIDOMIDE (THALIDOMIDE, ) [Suspect]
     Indication: MYELOFIBROSIS
     Dosage: 100 MG 1 X PER 1 DAY, ORAL
     Route: 048
     Dates: start: 20030530, end: 20030613

REACTIONS (1)
  - RENAL FAILURE ACUTE [None]
